FAERS Safety Report 4979758-9 (Version None)
Quarter: 2006Q2

REPORT INFORMATION
  Report Type: 
  Country: None (occurrence: None)
  Receive Date: 20060418
  Receipt Date: 20060405
  Transmission Date: 20061013
  Serious: Yes (Death, Hospitalization)
  Sender: FDA-Public Use
  Company Number: 2006031650

PATIENT
  Sex: Male

DRUGS (4)
  1. NEURONTIN [Suspect]
     Indication: PAIN
  2. SOMA [Suspect]
     Indication: PAIN
  3. AMBIEN [Suspect]
     Indication: SLEEP DISORDER
  4. DARVOCET [Concomitant]

REACTIONS (7)
  - ASPIRATION [None]
  - COMPLETED SUICIDE [None]
  - DYSPNOEA [None]
  - FALL [None]
  - MULTIPLE DRUG OVERDOSE INTENTIONAL [None]
  - TREATMENT NONCOMPLIANCE [None]
  - VOMITING [None]
